FAERS Safety Report 7995979-5 (Version None)
Quarter: 2011Q4

REPORT INFORMATION
  Report Type: 
  Country: None (occurrence: None)
  Receive Date: 20111216
  Receipt Date: 20111205
  Transmission Date: 20120403
  Serious: Yes (Death, Hospitalization, Disabling, Other)
  Sender: FDA-Public Use
  Company Number: 2011MA017250

PATIENT
  Age: 54 Year
  Sex: Male

DRUGS (5)
  1. DEXAMETHASONE [Suspect]
     Indication: BRAIN OEDEMA
  2. PYRIMETHAMINE TAB [Suspect]
     Indication: CEREBRAL TOXOPLASMOSIS
  3. INSULIN [Suspect]
     Indication: BLOOD GLUCOSE ABNORMAL
     Dosage: SQ
  4. DAPSONE [Suspect]
     Indication: ANTIFUNGAL PROPHYLAXIS
  5. CLINDAMYCIN PHOSPHATE [Suspect]
     Indication: CEREBRAL TOXOPLASMOSIS

REACTIONS (8)
  - TOXICITY TO VARIOUS AGENTS [None]
  - BLINDNESS UNILATERAL [None]
  - RESPIRATORY FAILURE [None]
  - ZYGOMYCOSIS [None]
  - MENTAL STATUS CHANGES [None]
  - HAEMODYNAMIC INSTABILITY [None]
  - OPHTHALMOPLEGIA [None]
  - BONE MARROW FAILURE [None]
